FAERS Safety Report 9860634 (Version 1)
Quarter: 2014Q1

REPORT INFORMATION
  Report Type: Spontaneous
  Country: US (occurrence: None)
  Receive Date: 20140131
  Receipt Date: 20140131
  Transmission Date: 20141002
  Serious: Yes (Other)
  Sender: FDA-Public Use
  Company Number: None

PATIENT
  Age: 54 Year
  Sex: Female
  Weight: 62.6 kg

DRUGS (1)
  1. LEVOTHYROXINE [Suspect]
     Indication: THYROID HORMONE REPLACEMENT THERAPY
     Route: 048

REACTIONS (8)
  - Palpitations [None]
  - Dizziness [None]
  - Presyncope [None]
  - Sleep disorder [None]
  - Arrhythmia [None]
  - Tremor [None]
  - Product substitution issue [None]
  - Drug effect increased [None]
